FAERS Safety Report 18629411 (Version 1)
Quarter: 2020Q4

REPORT INFORMATION
  Report Type: Spontaneous
  Country: CZ (occurrence: CZ)
  Receive Date: 20201217
  Receipt Date: 20201217
  Transmission Date: 20210114
  Serious: Yes (Hospitalization, Other)
  Sender: FDA-Public Use
  Company Number: CZ-FRESENIUS KABI-FK202013429

PATIENT
  Age: 41 Year
  Sex: Female
  Weight: 60 kg

DRUGS (6)
  1. DAUNORUBICIN [Suspect]
     Active Substance: DAUNORUBICIN
     Indication: ACUTE MYELOID LEUKAEMIA
     Dosage: DAY 1-3
     Route: 042
     Dates: start: 20190831, end: 20190902
  2. GLASDEGIB [Suspect]
     Active Substance: GLASDEGIB
     Indication: ACUTE MYELOID LEUKAEMIA
     Dosage: PF-04449913; PLACEBO ?ONGOING?UNK, ONCE DAILY CONTINUOUS
     Route: 048
     Dates: start: 20190901
  3. MIRTAZAPINE. [Concomitant]
     Active Substance: MIRTAZAPINE
     Indication: DEPRESSION
     Dosage: ONGOING
     Route: 065
     Dates: start: 20191002
  4. FLUCONAZOLE. [Concomitant]
     Active Substance: FLUCONAZOLE
     Indication: INFECTION PROPHYLAXIS
     Dosage: ONGOING
     Route: 065
     Dates: start: 20191011
  5. CYTARABINE (MANUFACTURER UNKNOWN) [Suspect]
     Active Substance: CYTARABINE
     Indication: ACUTE MYELOID LEUKAEMIA
     Dosage: ONGOING?CYCLIC (EVERY 12 HOUR DAY 1,3,5)
     Route: 042
     Dates: start: 20191011
  6. DAPSONE. [Concomitant]
     Active Substance: DAPSONE
     Indication: INFECTION PROPHYLAXIS
     Dosage: ONGOING
     Route: 065
     Dates: start: 20201002

REACTIONS (1)
  - Febrile neutropenia [Recovered/Resolved]

NARRATIVE: CASE EVENT DATE: 20191027
